FAERS Safety Report 10680606 (Version 5)
Quarter: 2015Q4

REPORT INFORMATION
  Report Type: Spontaneous
  Country: US (occurrence: US)
  Receive Date: 20141229
  Receipt Date: 20151229
  Transmission Date: 20160304
  Serious: Yes (Death, Hospitalization, Other)
  Sender: FDA-Public Use
  Company Number: US-SA-2014SA092733

PATIENT
  Age: 55 Year
  Sex: Female

DRUGS (52)
  1. SIMVASTATIN. [Concomitant]
     Active Substance: SIMVASTATIN
  2. OMEPRAZOLE. [Concomitant]
     Active Substance: OMEPRAZOLE
  3. PREVACID [Concomitant]
     Active Substance: LANSOPRAZOLE
  4. LEVAQUIN [Concomitant]
     Active Substance: LEVOFLOXACIN
  5. ZOLOFT [Concomitant]
     Active Substance: SERTRALINE HYDROCHLORIDE
  6. FERROUS SULFATE [Concomitant]
     Active Substance: FERROUS SULFATE\FERROUS SULFATE, DRIED
     Dosage: 325 MG
     Route: 048
  7. HYDROCORTISONE. [Concomitant]
     Active Substance: HYDROCORTISONE
     Route: 061
  8. BABY ASPIRIN [Concomitant]
     Active Substance: ASPIRIN
  9. ALBUTEROL SULFATE. [Concomitant]
     Active Substance: ALBUTEROL SULFATE
     Dosage: 0.083 TID PRN
  10. SPIRIVA [Concomitant]
     Active Substance: TIOTROPIUM BROMIDE MONOHYDRATE
     Route: 048
  11. XANAX [Concomitant]
     Active Substance: ALPRAZOLAM
     Route: 048
  12. METFORMIN [Concomitant]
     Active Substance: METFORMIN HYDROCHLORIDE
  13. OXYBUTYNIN [Concomitant]
     Active Substance: OXYBUTYNIN
  14. ADVAIR HFA [Concomitant]
     Active Substance: FLUTICASONE PROPIONATE\SALMETEROL XINAFOATE
     Route: 055
  15. LISINOPRIL. [Concomitant]
     Active Substance: LISINOPRIL
  16. SULFAMETHOXAZOLE [Concomitant]
     Active Substance: SULFAMETHOXAZOLE
  17. POTASSIUM CHLORIDE. [Concomitant]
     Active Substance: POTASSIUM CHLORIDE
     Route: 048
  18. HYDROCODONE [Concomitant]
     Active Substance: HYDROCODONE
  19. NITROGLYCERINE [Concomitant]
     Active Substance: NITROGLYCERIN
  20. METHYLPREDNISOLONE. [Concomitant]
     Active Substance: METHYLPREDNISOLONE
  21. CEPHALEXIN. [Concomitant]
     Active Substance: CEPHALEXIN
  22. TYLENOL [Concomitant]
     Active Substance: ACETAMINOPHEN
  23. DETROL [Concomitant]
     Active Substance: TOLTERODINE TARTRATE
     Route: 048
  24. CARAFATE [Concomitant]
     Active Substance: SUCRALFATE
  25. GABAPENTIN. [Concomitant]
     Active Substance: GABAPENTIN
  26. PROVENTIL [Concomitant]
     Active Substance: ALBUTEROL
  27. ADVIL [Concomitant]
     Active Substance: IBUPROFEN
     Route: 048
  28. AVELOX [Concomitant]
     Active Substance: MOXIFLOXACIN HYDROCHLORIDE
  29. BACTROBAN [Concomitant]
     Active Substance: MUPIROCIN\MUPIROCIN CALCIUM
  30. NEURONTIN [Concomitant]
     Active Substance: GABAPENTIN
     Route: 048
  31. NYSTATIN. [Concomitant]
     Active Substance: NYSTATIN
  32. SKELAXIN [Concomitant]
     Active Substance: METAXALONE
     Route: 048
  33. DIPHENHYDRAMINE. [Concomitant]
     Active Substance: DIPHENHYDRAMINE
     Dosage: SUSPENSION
  34. PLAVIX [Suspect]
     Active Substance: CLOPIDOGREL BISULFATE
     Indication: ARTERIAL OCCLUSIVE DISEASE
     Route: 048
     Dates: start: 200507, end: 20101111
  35. ALEVE [Concomitant]
     Active Substance: NAPROXEN SODIUM
  36. CIPROFLOXACIN. [Concomitant]
     Active Substance: CIPROFLOXACIN
  37. MORPHINE [Concomitant]
     Active Substance: MORPHINE
  38. SULAR [Concomitant]
     Active Substance: NISOLDIPINE
  39. GLIMEPIRIDE. [Concomitant]
     Active Substance: GLIMEPIRIDE
  40. CEFUROXIME. [Concomitant]
     Active Substance: CEFUROXIME
  41. OXYCODONE [Concomitant]
     Active Substance: OXYCODONE
  42. ZOCOR [Concomitant]
     Active Substance: SIMVASTATIN
     Route: 048
  43. PLAVIX [Suspect]
     Active Substance: CLOPIDOGREL BISULFATE
     Indication: STENT PLACEMENT
     Route: 048
     Dates: start: 200507, end: 20101111
  44. SERTRALINE [Concomitant]
     Active Substance: SERTRALINE HYDROCHLORIDE
  45. TOPROL XL [Concomitant]
     Active Substance: METOPROLOL SUCCINATE
  46. DIOVAN [Concomitant]
     Active Substance: VALSARTAN
  47. ALPRAZOLAM. [Concomitant]
     Active Substance: ALPRAZOLAM
  48. AMLODIPINE [Concomitant]
     Active Substance: AMLODIPINE BESYLATE
  49. THEOPHYLLINE [Concomitant]
     Active Substance: THEOPHYLLINE ANHYDROUS
  50. AZITHROMYCIN [Concomitant]
     Active Substance: AZITHROMYCIN ANHYDROUS
  51. DEXILANT [Concomitant]
     Active Substance: DEXLANSOPRAZOLE
     Route: 048
  52. ULTRAM [Concomitant]
     Active Substance: TRAMADOL HYDROCHLORIDE

REACTIONS (13)
  - Occult blood positive [Unknown]
  - Weight decreased [Unknown]
  - Anaemia [Unknown]
  - Abdominal pain [Unknown]
  - Hyperventilation [Unknown]
  - Diverticulitis [Unknown]
  - Lung infection [Unknown]
  - Menorrhagia [Unknown]
  - Gastrointestinal haemorrhage [Unknown]
  - Pulmonary pain [Unknown]
  - Cough [Unknown]
  - Dyspnoea [Unknown]
  - Rectal haemorrhage [Unknown]

NARRATIVE: CASE EVENT DATE: 20101111
